FAERS Safety Report 7229298-1 (Version None)
Quarter: 2011Q1

REPORT INFORMATION
  Report Type: 
  Country: None (occurrence: None)
  Receive Date: 20110117
  Receipt Date: 20110113
  Transmission Date: 20110831
  Serious: Yes (Hospitalization)
  Sender: FDA-Public Use
  Company Number: A0905788A

PATIENT
  Age: 52 Year
  Sex: Male

DRUGS (3)
  1. NICODERM CQ [Suspect]
     Indication: SMOKING CESSATION THERAPY
     Route: 062
  2. NICOTINE POLACRILEX [Suspect]
     Indication: SMOKING CESSATION THERAPY
     Route: 002
  3. NICODERM CQ [Suspect]
     Indication: SMOKING CESSATION THERAPY
     Route: 062

REACTIONS (5)
  - GASTROOESOPHAGEAL REFLUX DISEASE [None]
  - CHEST PAIN [None]
  - APPLICATION SITE RASH [None]
  - CONDITION AGGRAVATED [None]
  - DYSPEPSIA [None]
